FAERS Safety Report 8505953-8 (Version None)
Quarter: 2012Q3

REPORT INFORMATION
  Report Type: 
  Country: None (occurrence: None)
  Receive Date: 20120712
  Receipt Date: 20110725
  Transmission Date: 20120928
  Serious: Yes (Other)
  Sender: FDA-Public Use
  Company Number: US-GLAXOSMITHKLINE-A0938923A

PATIENT
  Age: 60 Year
  Sex: Female

DRUGS (1)
  1. PAXIL [Suspect]
     Indication: PRODUCT USED FOR UNKNOWN INDICATION
     Route: 065
     Dates: start: 19900101

REACTIONS (8)
  - MEMORY IMPAIRMENT [None]
  - ADVERSE DRUG REACTION [None]
  - TINNITUS [None]
  - SUICIDE ATTEMPT [None]
  - DRUG INEFFECTIVE [None]
  - LOSS OF EMPLOYMENT [None]
  - FEELING ABNORMAL [None]
  - DEPRESSION [None]
